FAERS Safety Report 5209173-4 (Version None)
Quarter: 2007Q1

REPORT INFORMATION
  Report Type: 
  Country: None (occurrence: None)
  Receive Date: 20070116
  Receipt Date: 20070109
  Transmission Date: 20070707
  Serious: Yes (Death, Hospitalization)
  Sender: FDA-Public Use
  Company Number: GB-ROCHE-365089

PATIENT
  Age: 66 Year
  Sex: Male
  Weight: 75.5 kg

DRUGS (8)
  1. CAPECITABINE [Suspect]
     Dosage: INTERMITTENT THERAPY OF 2 WEEKS TREATMENT FOLLOWED BY 1 WEEK REST IN A CYCLE OF 3 WEEKS
     Route: 048
     Dates: start: 20040318, end: 20040416
  2. CAPECITABINE [Suspect]
     Dosage: INTERMITTENT THERAPY OF 2 WEEKS TREATMENT FOLLOWED BY 1 WEEK REST IN A CYCLE OF 3 WEEKS.
     Route: 048
     Dates: start: 20040429, end: 20040813
  3. OXALIPLATIN [Suspect]
     Dosage: FREQUENCY ALSO REPORTED AS ^3/52^.
     Route: 042
     Dates: start: 20040318, end: 20040907
  4. SALBUTAMOL [Concomitant]
  5. CLOPIDOGREL [Concomitant]
  6. PANTOPRAZOLE SODIUM [Concomitant]
  7. PARACETAMOL [Concomitant]
  8. LOPERAMIDE HCL [Concomitant]

REACTIONS (3)
  - ASTHMA [None]
  - LOWER RESPIRATORY TRACT INFECTION [None]
  - PNEUMONIA [None]
